FAERS Safety Report 18637827 (Version 1)
Quarter: 2020Q4

REPORT INFORMATION
  Report Type: Spontaneous
  Country: US (occurrence: US)
  Receive Date: 20201218
  Receipt Date: 20201218
  Transmission Date: 20210114
  Serious: Yes (Death, Other)
  Sender: FDA-Public Use
  Company Number: US-JAZZ-2020-US-016555

PATIENT
  Sex: Male

DRUGS (1)
  1. ZEPZELCA [Suspect]
     Active Substance: LURBINECTEDIN
     Indication: SMALL CELL LUNG CANCER
     Dosage: UNK

REACTIONS (5)
  - Sepsis [Unknown]
  - Drug ineffective [Unknown]
  - Death [Fatal]
  - Performance status decreased [Unknown]
  - Mechanical ventilation [Unknown]
